FAERS Safety Report 8483258-1 (Version None)
Quarter: 2012Q3

REPORT INFORMATION
  Report Type: 
  Country: None (occurrence: None)
  Receive Date: 20120702
  Receipt Date: 20120628
  Transmission Date: 20120928
  Serious: Yes (Death)
  Sender: FDA-Public Use
  Company Number: US-ACTELION-A-US2012-67867

PATIENT

DRUGS (15)
  1. FENTANYL CITRATE [Concomitant]
  2. FLONASE [Concomitant]
  3. SYNTHROID [Concomitant]
  4. VENTAVIS [Suspect]
     Indication: PULMONARY ARTERIAL HYPERTENSION
     Dosage: UNK
     Route: 055
     Dates: start: 20100504, end: 20120607
  5. COUMADIN [Concomitant]
  6. PRILOSEC [Concomitant]
  7. TOPROL-XL [Concomitant]
  8. VITAMIN D [Concomitant]
  9. ZOCOR [Concomitant]
  10. LOMOTIL [Concomitant]
  11. DUONEB [Concomitant]
  12. GLUCOTROL [Concomitant]
  13. VALIUM [Concomitant]
  14. DELTASONE [Concomitant]
  15. DIOVAN [Concomitant]

REACTIONS (1)
  - DEATH [None]
